FAERS Safety Report 9296223 (Version 4)
Quarter: 2013Q3

REPORT INFORMATION
  Report Type: Report from Study
  Country: JP (occurrence: JP)
  Receive Date: 20130517
  Receipt Date: 20130913
  Transmission Date: 20140515
  Serious: Yes (Disabling)
  Sender: FDA-Public Use
  Company Number: JP-GLAXOSMITHKLINE-B0891573A

PATIENT
  Age: 65 Year
  Sex: Female
  Weight: 42 kg

DRUGS (8)
  1. VOTRIENT 200MG GLAXO SMITH KLINE [Suspect]
     Indication: LIPOSARCOMA
     Dosage: 800MG PER DAY
     Route: 048
     Dates: start: 20121203, end: 20130108
  2. VOTRIENT 200MG GLAXO SMITH KLINE [Suspect]
     Indication: LIPOSARCOMA
     Dosage: 200MG THREE TIMES PER DAY
     Route: 048
     Dates: start: 20130118, end: 20130329
  3. VOTRIENT 200MG GLAXO SMITH KLINE [Suspect]
     Indication: LIPOSARCOMA
     Dosage: 200MG TWICE PER DAY
     Route: 048
     Dates: start: 20130416, end: 20130524
  4. CRAVIT [Concomitant]
     Route: 048
  5. LOXONIN [Concomitant]
     Route: 048
  6. SELBEX [Concomitant]
     Route: 048
  7. LAXOBERON [Concomitant]
     Route: 048
  8. FUROSEMIDE [Concomitant]
     Route: 048

REACTIONS (3)
  - Gastrointestinal perforation [Recovered/Resolved]
  - Peritonitis [Recovered/Resolved]
  - Palmar-plantar erythrodysaesthesia syndrome [Recovered/Resolved]
